FAERS Safety Report 5639483-8 (Version None)
Quarter: 2008Q1

REPORT INFORMATION
  Report Type: 
  Country: None (occurrence: None)
  Receive Date: 20080131
  Receipt Date: 20071005
  Transmission Date: 20080703
  Serious: Yes (Hospitalization)
  Sender: FDA-Public Use
  Company Number: 163-21880-07100392

PATIENT
  Sex: Male

DRUGS (1)
  1. REVLIMID [Suspect]
     Indication: PROSTATE CANCER
     Dosage: 25 MG, ORAL
     Route: 048
     Dates: start: 20071002

REACTIONS (5)
  - CONSTIPATION [None]
  - DYSPEPSIA [None]
  - INFECTION [None]
  - NAUSEA [None]
  - VOMITING [None]
